FAERS Safety Report 24405289 (Version 1)
Quarter: 2024Q4

REPORT INFORMATION
  Report Type: Report from Study
  Country: CN (occurrence: CN)
  Receive Date: 20241007
  Receipt Date: 20241007
  Transmission Date: 20250115
  Serious: No
  Sender: ROCHE
  Company Number: CN-ROCHE-3567478

PATIENT
  Age: 39 Year
  Sex: Female
  Weight: 70.0 kg

DRUGS (2)
  1. GAZYVA [Suspect]
     Active Substance: OBINUTUZUMAB
     Indication: Diffuse large B-cell lymphoma
     Dosage: CYCLE 1 DAY 1, PRETREATMENT SINGLE DOSE
     Route: 041
     Dates: start: 20240316, end: 20240316
  2. COLUMVI [Suspect]
     Active Substance: GLOFITAMAB-GXBM
     Indication: Diffuse large B-cell lymphoma
     Dosage: CYCLE 1:2.5 MG ON DAY 8, 10 MG ON DAY 15; CYCLES 2-12:30 MG
     Route: 041
     Dates: start: 20240323

REACTIONS (1)
  - Pyrexia [Recovered/Resolved]

NARRATIVE: CASE EVENT DATE: 20240518
